FAERS Safety Report 9156548 (Version 1)
Quarter: 2013Q1

REPORT INFORMATION
  Report Type: Spontaneous
  Country: US (occurrence: None)
  Receive Date: 20130208
  Receipt Date: 20130208
  Transmission Date: 20140127
  Serious: Yes (Hospitalization, Other)
  Sender: FDA-Public Use
  Company Number: NSR_00982_2013

PATIENT
  Age: 48 Year
  Sex: Male

DRUGS (5)
  1. VENLAFAXINE [Suspect]
  2. BUPROPION [Suspect]
     Dosage: 300 MG (DAILY, SELF INCREASED)
  3. HYDROXYZINE [Suspect]
     Dosage: 10 MG  TID, (AS NEEDED)
  4. CLONAZEPAM [Suspect]
     Dosage: 2 MG, (DAILY, TAPERED AND DISCONTINUED 3 WEEKS PRIOR TO ADMISSION)
  5. METOPROLOL TARTRATE [Suspect]
     Dosage: 50 MG BID, HELD FOR 6 DAYS

REACTIONS (9)
  - Altered state of consciousness [None]
  - Confusional state [None]
  - Treatment noncompliance [None]
  - Agitation [None]
  - Tremor [None]
  - Incorrect dose administered [None]
  - Restlessness [None]
  - Hyperhidrosis [None]
  - Substance-induced psychotic disorder [None]
